FAERS Safety Report 15636941 (Version 2)
Quarter: 2018Q4

REPORT INFORMATION
  Report Type: Spontaneous
  Country: US (occurrence: US)
  Receive Date: 20181120
  Receipt Date: 20181204
  Transmission Date: 20190205
  Serious: No
  Sender: FDA-Public Use
  Company Number: US-SA-2018SA317756

PATIENT
  Sex: Female

DRUGS (1)
  1. DUPIXENT [Suspect]
     Active Substance: DUPILUMAB
     Indication: DERMATITIS ATOPIC
     Dosage: 300 MG, QOW
     Route: 058
     Dates: start: 20180927

REACTIONS (6)
  - Injection site erythema [Unknown]
  - Injection site rash [Unknown]
  - Burning sensation [Recovered/Resolved]
  - Injection site pain [Unknown]
  - Rash [Recovered/Resolved]
  - Alopecia [Recovered/Resolved]
